FAERS Safety Report 13459909 (Version 1)
Quarter: 2017Q2

REPORT INFORMATION
  Report Type: Spontaneous
  Country: US (occurrence: US)
  Receive Date: 20170420
  Receipt Date: 20170420
  Transmission Date: 20170830
  Serious: Yes (Hospitalization)
  Sender: FDA-Public Use
  Company Number: US-TEVA-649938USA

PATIENT
  Age: 69 Year
  Sex: Male
  Weight: 83.08 kg

DRUGS (2)
  1. VORICONAZOLE. [Suspect]
     Active Substance: VORICONAZOLE
     Route: 065
  2. VFEND [Suspect]
     Active Substance: VORICONAZOLE
     Dosage: 400 MILLIGRAM DAILY;
     Route: 065
     Dates: start: 201509

REACTIONS (1)
  - Pneumonia [Recovered/Resolved]

NARRATIVE: CASE EVENT DATE: 201602
